FAERS Safety Report 5622805-1 (Version None)
Quarter: 2008Q1

REPORT INFORMATION
  Report Type: 
  Country: None (occurrence: None)
  Receive Date: 20080212
  Receipt Date: 20080208
  Transmission Date: 20080703
  Serious: Yes (Hospitalization, Other)
  Sender: FDA-Public Use
  Company Number: SE-BRISTOL-MYERS SQUIBB COMPANY-14047989

PATIENT
  Age: 68 Year
  Sex: Male

DRUGS (6)
  1. BLEOMYCIN HCL [Suspect]
     Indication: HODGKIN'S DISEASE
  2. VINBLASTINE SULFATE [Concomitant]
     Dates: start: 20071122, end: 20071122
  3. LIPITOR [Concomitant]
     Route: 048
  4. ALLOPURINOL [Concomitant]
     Dates: start: 20071122, end: 20071122
  5. DOXORUBICIN [Concomitant]
     Dates: start: 20071122, end: 20071122
  6. ASPIRIN [Concomitant]
     Route: 048

REACTIONS (4)
  - ANAEMIA [None]
  - C-REACTIVE PROTEIN INCREASED [None]
  - HYPOTENSION [None]
  - PYREXIA [None]
